FAERS Safety Report 22049029 (Version 1)
Quarter: 2023Q1

REPORT INFORMATION
  Report Type: Spontaneous
  Country: US (occurrence: None)
  Receive Date: 20230228
  Receipt Date: 20230228
  Transmission Date: 20230418
  Serious: Yes (Life-Threatening, Disabling)
  Sender: FDA-Public Use
  Company Number: None

PATIENT
  Sex: Male
  Weight: 65.25 kg

DRUGS (2)
  1. CLONAZEPAM [Suspect]
     Active Substance: CLONAZEPAM
     Indication: Panic disorder
     Dosage: OTHER QUANTITY : 1 TABLET(S);?OTHER FREQUENCY : DECREASING DAILY;?
     Route: 048
     Dates: start: 20210517
  2. DILTIAZEM [Concomitant]
     Active Substance: DILTIAZEM

REACTIONS (28)
  - Panic attack [None]
  - Middle insomnia [None]
  - Anxiety [None]
  - Back pain [None]
  - Abdominal distension [None]
  - Flatulence [None]
  - Suicidal ideation [None]
  - Depression [None]
  - Anhedonia [None]
  - Derealisation [None]
  - Irritability [None]
  - Agitation [None]
  - Anger [None]
  - Feeling abnormal [None]
  - Head discomfort [None]
  - Chest discomfort [None]
  - Palpitations [None]
  - Skin burning sensation [None]
  - Dyspepsia [None]
  - Nausea [None]
  - Tinnitus [None]
  - Temperature intolerance [None]
  - Hypoaesthesia [None]
  - Paraesthesia [None]
  - Myalgia [None]
  - Drug dependence [None]
  - Drug tolerance [None]
  - Drug withdrawal syndrome [None]
